FAERS Safety Report 7354551-0 (Version None)
Quarter: 2011Q1

REPORT INFORMATION
  Report Type: 
  Country: None (occurrence: None)
  Receive Date: 20110304
  Receipt Date: 20090619
  Transmission Date: 20110831
  Serious: Yes (Other)
  Sender: FDA-Public Use
  Company Number: UK-2009-00200

PATIENT
  Age: 72 Year
  Sex: Female

DRUGS (9)
  1. LEVOTHYROXINE SODIUM [Concomitant]
  2. SALBUTAMOL [Concomitant]
  3. WARFARIN [Concomitant]
  4. FRUSEMIDE [Concomitant]
  5. CLARITHROMYCIN [Concomitant]
  6. PARACETAMOL [Concomitant]
  7. TIOTROPIUM BROMIDE [Concomitant]
  8. SIMVASTATIN [Suspect]
     Indication: BLOOD CHOLESTEROL
     Dosage: 20 MG (20 MG) ORAL
     Route: 048
     Dates: start: 20090311, end: 20091203
  9. ACETAMINOPHEN AND CODEINE PHOSPHATE [Concomitant]

REACTIONS (1)
  - GOUT [None]
